FAERS Safety Report 14258216 (Version 2)
Quarter: 2025Q3

REPORT INFORMATION
  Report Type: Spontaneous
  Country: EU (occurrence: EU)
  Receive Date: 20171207
  Receipt Date: 20250821
  Transmission Date: 20251021
  Serious: Yes (Death, Life-Threatening, Other)
  Sender: CIPLA
  Company Number: EU-MLMSERVICE-20170424-0565847-2

PATIENT

DRUGS (3)
  1. EPIRUBICIN [Suspect]
     Active Substance: EPIRUBICIN
     Indication: Oesophageal carcinoma
     Route: 065
  2. CAPECITABINE [Suspect]
     Active Substance: CAPECITABINE
     Indication: Oesophageal carcinoma
     Route: 065
  3. CISPLATIN [Suspect]
     Active Substance: CISPLATIN
     Indication: Oesophageal carcinoma
     Route: 065

REACTIONS (4)
  - Diarrhoea [Fatal]
  - Mucosal inflammation [Fatal]
  - Leukopenia [Fatal]
  - Thrombocytopenia [Fatal]
